FAERS Safety Report 15773940 (Version 1)
Quarter: 2018Q4

REPORT INFORMATION
  Report Type: Spontaneous
  Country: US (occurrence: US)
  Receive Date: 20181229
  Receipt Date: 20181229
  Transmission Date: 20190205
  Serious: Yes (Death, Hospitalization, Other)
  Sender: FDA-Public Use
  Company Number: US-AUROBINDO-AUR-APL-2018-062187

PATIENT
  Age: 3 Year
  Sex: Male

DRUGS (2)
  1. ACETAMINOPHEN. [Suspect]
     Active Substance: ACETAMINOPHEN
     Indication: PRODUCT USED FOR UNKNOWN INDICATION
     Dosage: 42/105 MG/KG/DAY
     Route: 048
  2. IBUPROFEN. [Concomitant]
     Active Substance: IBUPROFEN
     Indication: UPPER RESPIRATORY TRACT INFECTION
     Dosage: UNK
     Route: 048

REACTIONS (12)
  - Death [Fatal]
  - Unresponsive to stimuli [Unknown]
  - Vomiting [Unknown]
  - Nausea [Unknown]
  - Tachypnoea [Unknown]
  - Sepsis [Fatal]
  - Pneumonia [Fatal]
  - Respiratory distress [Unknown]
  - Abdominal tenderness [Unknown]
  - Acute hepatic failure [Fatal]
  - Diarrhoea [Unknown]
  - Lethargy [Unknown]
